FAERS Safety Report 8309511-X (Version None)
Quarter: 2012Q2

REPORT INFORMATION
  Report Type: 
  Country: None (occurrence: None)
  Receive Date: 20120425
  Receipt Date: 20120419
  Transmission Date: 20120825
  Serious: No
  Sender: FDA-Public Use
  Company Number: US-PFIZER INC-2012098285

PATIENT
  Sex: Female
  Weight: 91.2 kg

DRUGS (1)
  1. EFFEXOR XR [Suspect]
     Indication: DEPRESSION
     Dosage: 225 MG, DAILY
     Dates: end: 20120301

REACTIONS (2)
  - DRUG WITHDRAWAL SYNDROME [None]
  - CONFUSIONAL STATE [None]
